FAERS Safety Report 4897732-8 (Version None)
Quarter: 2006Q1

REPORT INFORMATION
  Report Type: 
  Country: None (occurrence: None)
  Receive Date: 20060201
  Receipt Date: 20060126
  Transmission Date: 20060701
  Serious: Yes (Hospitalization)
  Sender: FDA-Public Use
  Company Number: 2006PK00238

PATIENT
  Age: 43 Year
  Sex: Female

DRUGS (12)
  1. SEROQUEL [Suspect]
     Route: 048
     Dates: start: 20050627, end: 20050627
  2. SEROQUEL [Suspect]
     Route: 048
     Dates: start: 20050628, end: 20050628
  3. SEROQUEL [Suspect]
     Route: 048
     Dates: start: 20050629, end: 20050629
  4. SEROQUEL [Suspect]
     Route: 048
     Dates: start: 20050630, end: 20050630
  5. SEROQUEL [Suspect]
     Route: 048
     Dates: start: 20050701, end: 20050704
  6. SEROQUEL [Suspect]
     Route: 048
     Dates: start: 20050705, end: 20050705
  7. SOLIAN [Concomitant]
     Route: 048
     Dates: start: 20030101, end: 20050626
  8. SOLIAN [Concomitant]
     Route: 048
     Dates: start: 20050627, end: 20050628
  9. SOLIAN [Concomitant]
     Route: 048
     Dates: start: 20050629, end: 20050629
  10. SOLIAN [Concomitant]
     Route: 048
     Dates: start: 20050630, end: 20050630
  11. LITHIUM CARBONATE [Concomitant]
     Route: 048
     Dates: start: 20030101, end: 20050706
  12. LITHIUM CARBONATE [Concomitant]
     Route: 048
     Dates: start: 20050707

REACTIONS (4)
  - ANXIETY [None]
  - HYPERHIDROSIS [None]
  - PALPITATIONS [None]
  - SUICIDAL IDEATION [None]
